FAERS Safety Report 22622511 (Version 1)
Quarter: 2023Q2

REPORT INFORMATION
  Report Type: Report from Study
  Country: CA (occurrence: CA)
  Receive Date: 20230621
  Receipt Date: 20230621
  Transmission Date: 20230722
  Serious: Yes (Other)
  Sender: FDA-Public Use
  Company Number: CA-CELLTRION INC.-2023CA012463

PATIENT

DRUGS (1)
  1. TRUXIMA [Suspect]
     Active Substance: RITUXIMAB-ABBS
     Indication: Delayed haemolytic transfusion reaction
     Dosage: 1000 MG X 2 DOSES (4 X 500 MG VIALS = 2000 MG)

REACTIONS (3)
  - Delayed haemolytic transfusion reaction [Unknown]
  - Off label use [Unknown]
  - Inability to afford medication [Unknown]
